FAERS Safety Report 8275026-0 (Version None)
Quarter: 2012Q2

REPORT INFORMATION
  Report Type: 
  Country: None (occurrence: None)
  Receive Date: 20120411
  Receipt Date: 20120404
  Transmission Date: 20120825
  Serious: Yes (Hospitalization)
  Sender: FDA-Public Use
  Company Number: US-US-EMD SERONO, INC.-7121303

PATIENT
  Sex: Female

DRUGS (5)
  1. REBIF [Suspect]
     Route: 058
     Dates: start: 20120329
  2. SOLU-MEDROL [Concomitant]
     Indication: OPTIC NEURITIS
  3. REBIF [Suspect]
     Indication: MULTIPLE SCLEROSIS
     Route: 058
     Dates: start: 20120317
  4. REBIF [Suspect]
     Route: 058
     Dates: start: 20120326, end: 20120327
  5. SOLU-MEDROL [Concomitant]
     Indication: MULTIPLE SCLEROSIS RELAPSE
     Dates: start: 20120201

REACTIONS (5)
  - NAUSEA [None]
  - INJECTION SITE ERYTHEMA [None]
  - DIZZINESS [None]
  - INFLUENZA LIKE ILLNESS [None]
  - NON-CARDIAC CHEST PAIN [None]
